FAERS Safety Report 7088027-5 (Version None)
Quarter: 2010Q4

REPORT INFORMATION
  Report Type: 
  Country: None (occurrence: None)
  Receive Date: 20101108
  Receipt Date: 20101029
  Transmission Date: 20110411
  Serious: Yes (Hospitalization)
  Sender: FDA-Public Use
  Company Number: US-SOLVAY-00210006531

PATIENT
  Age: 30341 Day
  Sex: Female
  Weight: 56.818 kg

DRUGS (1)
  1. CREON [Suspect]
     Indication: PANCREATIC DISORDER
     Dosage: DAILY DOSE:  UNKNOWN
     Route: 065
     Dates: start: 20101021, end: 20101022

REACTIONS (5)
  - CHILLS [None]
  - DIVERTICULITIS [None]
  - GASTRIC DISORDER [None]
  - PYREXIA [None]
  - WHITE BLOOD CELL COUNT INCREASED [None]
